FAERS Safety Report 8799914 (Version 2)
Quarter: 2012Q4

REPORT INFORMATION
  Report Type: Spontaneous
  Country: None (occurrence: None)
  Receive Date: 20120917
  Receipt Date: 20121005
  Transmission Date: 20130627
  Serious: Yes (Disabling)
  Sender: FDA-Public Use
  Company Number: AUR-APL-2012-03927

PATIENT
  Sex: Male
  Weight: 101.6 kg

DRUGS (2)
  1. CITALOPRAM (CITALOPRAM) [Suspect]
     Indication: OBSESSIVE-COMPULSIVE DISORDER
     Route: 048
     Dates: start: 2004, end: 20120827
  2. QUETIAPINE [Concomitant]
     Indication: PRODUCT USED FOR UNKNOWN INDICATION

REACTIONS (7)
  - Drug interaction [None]
  - Apathy [None]
  - Therapeutic product ineffective for unapproved indication [None]
  - Abnormal dreams [None]
  - Fatigue [None]
  - Obsessive-compulsive disorder [None]
  - Condition aggravated [None]
